FAERS Safety Report 4277332-3 (Version None)
Quarter: 2004Q1

REPORT INFORMATION
  Report Type: 
  Country: None (occurrence: None)
  Receive Date: 20040121
  Receipt Date: 20040121
  Transmission Date: 20041129
  Serious: Yes (Hospitalization)
  Sender: FDA-Public Use
  Company Number: None

PATIENT
  Sex: Male
  Weight: 86.1834 kg

DRUGS (6)
  1. LEVAQUIN [Suspect]
     Indication: OTITIS MEDIA
     Dosage: 500MG ONCE DAILY ORAL
     Route: 048
     Dates: start: 20040105, end: 20040109
  2. LEVAQUIN [Suspect]
     Indication: PHARYNGITIS
     Dosage: 500MG ONCE DAILY ORAL
     Route: 048
     Dates: start: 20040105, end: 20040109
  3. WELLBUTRIN SR [Suspect]
     Indication: DEPRESSION
     Dosage: 150MG  TWICE DAILY  ORAL
     Route: 048
     Dates: start: 20030822, end: 20040119
  4. .. [Concomitant]
  5. NYQUIL [Concomitant]
  6. DIOVAN HCT [Concomitant]

REACTIONS (2)
  - CHOREA [None]
  - DYSKINESIA [None]
